FAERS Safety Report 21573629 (Version 4)
Quarter: 2023Q1

REPORT INFORMATION
  Report Type: Report from Study
  Country: US (occurrence: US)
  Receive Date: 20221109
  Receipt Date: 20230118
  Transmission Date: 20230418
  Serious: Yes (Other)
  Sender: FDA-Public Use
  Company Number: US-OTSUKA-2022_050899

PATIENT
  Sex: Female

DRUGS (3)
  1. TOLVAPTAN [Suspect]
     Active Substance: TOLVAPTAN
     Indication: Congenital cystic kidney disease
     Dosage: 15 MG, QD (UPON WAKING)
     Route: 048
  2. TOLVAPTAN [Suspect]
     Active Substance: TOLVAPTAN
     Dosage: 15 MG, QD (8 HOURS LATER)
     Route: 048
  3. CANNABIS SATIVA SUBSP. INDICA TOP [Concomitant]
     Active Substance: CANNABIS SATIVA SUBSP. INDICA TOP
     Indication: Product used for unknown indication
     Dosage: UNK
     Route: 065

REACTIONS (13)
  - Feeling abnormal [Unknown]
  - Panic attack [Unknown]
  - Loss of consciousness [Unknown]
  - Vomiting [Unknown]
  - Nausea [Unknown]
  - Weight decreased [Unknown]
  - Palpitations [Unknown]
  - Polydipsia [Unknown]
  - Decreased appetite [Unknown]
  - Dizziness [Unknown]
  - Pollakiuria [Unknown]
  - Underdose [Unknown]
  - Therapy cessation [Unknown]
